FAERS Safety Report 4372328-5 (Version None)
Quarter: 2004Q2

REPORT INFORMATION
  Report Type: 
  Country: None (occurrence: None)
  Receive Date: 20040602
  Receipt Date: 20040504
  Transmission Date: 20050107
  Serious: Yes (Hospitalization)
  Sender: FDA-Public Use
  Company Number: 2004210877FR

PATIENT
  Age: 70 Year
  Sex: Female
  Weight: 72 kg

DRUGS (1)
  1. XALATAN [Suspect]
     Indication: GLAUCOMA
     Dosage: 1 GTT, QD, OPHTHALMIC
     Route: 047
     Dates: start: 20040202, end: 20040503

REACTIONS (6)
  - ACUTE PULMONARY OEDEMA [None]
  - BACK PAIN [None]
  - RENAL ARTERY OCCLUSION [None]
  - RENAL ARTERY STENOSIS [None]
  - RENOVASCULAR HYPERTENSION [None]
  - STENT OCCLUSION [None]
